FAERS Safety Report 9029873 (Version 1)
Quarter: 2013Q1

REPORT INFORMATION
  Report Type: Spontaneous
  Country: US (occurrence: US)
  Receive Date: 20130124
  Receipt Date: 20130124
  Transmission Date: 20140127
  Serious: Yes (Hospitalization)
  Sender: FDA-Public Use
  Company Number: US-BAYER-2013-006806

PATIENT
  Age: 70 Year
  Sex: Male

DRUGS (8)
  1. BAYER GENUINE ASPIRIN ORIGINAL STRENGTH [Suspect]
  2. GLIPIZIDE [Suspect]
     Indication: TYPE 2 DIABETES MELLITUS
     Dosage: 2.5 MG, UNK
     Dates: start: 20111205
  3. ANGIOTENSIN II ANTAGONISTS [Concomitant]
  4. DIURETICS [Concomitant]
  5. ORGANIC NITRATES [Concomitant]
  6. STATIN [Concomitant]
  7. BETA BLOCKING AGENTS [Concomitant]
  8. ACE INHIBITOR NOS [Concomitant]

REACTIONS (2)
  - Haematoma [Recovered/Resolved]
  - Cellulitis [Not Recovered/Not Resolved]
